FAERS Safety Report 23592562 (Version 1)
Quarter: 2024Q1

REPORT INFORMATION
  Report Type: Spontaneous
  Country: US (occurrence: None)
  Receive Date: 20240303
  Receipt Date: 20240303
  Transmission Date: 20240409
  Serious: Yes (Other)
  Sender: FDA-Public Use
  Company Number: None

PATIENT
  Age: 5 Year
  Sex: Male
  Weight: 19.8 kg

DRUGS (4)
  1. CYPROHEPTADINE [Suspect]
     Active Substance: CYPROHEPTADINE
     Indication: Weight decreased
     Dosage: 7.5 ML TWICE A DAY ORAL
     Route: 048
     Dates: start: 20240103, end: 20240201
  2. Methylphenidate solution [Concomitant]
  3. SERTRALINE [Concomitant]
     Active Substance: SERTRALINE HYDROCHLORIDE
  4. CHILDREN^S MULTIVITAMIN [Concomitant]

REACTIONS (4)
  - Aggression [None]
  - Agitation [None]
  - Aggression [None]
  - Self-injurious ideation [None]

NARRATIVE: CASE EVENT DATE: 20240108
